FAERS Safety Report 9279120 (Version 1)
Quarter: 2013Q2

REPORT INFORMATION
  Report Type: Spontaneous
  Country: US (occurrence: US)
  Receive Date: 20130508
  Receipt Date: 20130508
  Transmission Date: 20140414
  Serious: No
  Sender: FDA-Public Use
  Company Number: US-TEVA-403873USA

PATIENT
  Age: 20 Year
  Sex: Female
  Weight: 56.75 kg

DRUGS (4)
  1. PLAN B ONE-STEP [Suspect]
     Indication: POST COITAL CONTRACEPTION
     Dosage: 1.5 MILLIGRAM DAILY;
     Route: 048
     Dates: start: 20130405, end: 20130405
  2. PLAN B ONE-STEP [Suspect]
     Dosage: 1.5 MILLIGRAM DAILY;
     Route: 048
     Dates: start: 20130415, end: 20130415
  3. ANTIBIOTICS FOR BACTERIAL VAGINOSIS [Concomitant]
     Indication: VAGINITIS BACTERIAL
  4. TRICYCLINE LO [Concomitant]
     Indication: CONTRACEPTION

REACTIONS (1)
  - Menstruation irregular [Not Recovered/Not Resolved]
